FAERS Safety Report 8961466 (Version 1)
Quarter: 2012Q4

REPORT INFORMATION
  Report Type: 
  Country: FR (occurrence: FR)
  Receive Date: 20121213
  Receipt Date: 20121213
  Transmission Date: 20130627
  Serious: Yes (Hospitalization)
  Sender: FDA-Public Use
  Company Number: FR-AMGEN-FRASP2012079227

PATIENT
  Age: 58 Year
  Sex: Female

DRUGS (11)
  1. ARANESP [Suspect]
     Indication: PRODUCT USED FOR UNKNOWN INDICATION
  2. ROCEPHINE [Concomitant]
     Indication: PERITONITIS BACTERIAL
     Dosage: 1 g, qd
     Route: 042
     Dates: start: 20120614, end: 20120629
  3. FLAGYL /00012501/ [Concomitant]
     Indication: INFECTIOUS PERITONITIS
     Dosage: 3 DF, tid
     Route: 042
     Dates: start: 20120620, end: 20120629
  4. LEVOTHYROXINE [Concomitant]
     Indication: HYPOTHYROIDISM
     Dosage: 125 mg, qd
     Route: 042
  5. ACUPAN [Concomitant]
     Dosage: UNK
     Dates: start: 20120608, end: 20120705
  6. ZOPHREN                            /00955301/ [Concomitant]
     Dosage: 1 DF, UNK
     Route: 042
     Dates: end: 20120629
  7. CALCIPARIN [Concomitant]
     Dosage: 2 DF, qd
     Route: 058
  8. DEBRIDAT                           /00465201/ [Concomitant]
     Dosage: 4 DF, qd
     Route: 042
  9. PARACETAMOL [Concomitant]
     Dosage: 4 g, qd
     Route: 042
  10. FUROSEMIDE [Concomitant]
     Dosage: UNK
     Dates: start: 20120609
  11. INEXIUM /01479302/ [Concomitant]
     Dosage: UNK
     Dates: start: 20120630

REACTIONS (1)
  - Rash morbilliform [Recovering/Resolving]
